FAERS Safety Report 9050715 (Version 2)
Quarter: 2013Q1

REPORT INFORMATION
  Report Type: Report from Study
  Country: AU (occurrence: AU)
  Receive Date: 20130205
  Receipt Date: 20130305
  Transmission Date: 20140127
  Serious: Yes (Other)
  Sender: FDA-Public Use
  Company Number: AU-CELGENEUS-008-20785-13013127

PATIENT
  Age: 63 None
  Sex: Male
  Weight: 65 kg

DRUGS (7)
  1. THALOMID [Suspect]
     Indication: ARTERIOVENOUS MALFORMATION
     Dosage: 100 MILLIGRAM
     Route: 048
     Dates: start: 20120405, end: 201207
  2. THALOMID [Suspect]
     Indication: OFF LABEL USE
     Dosage: 50 MILLIGRAM
     Route: 048
     Dates: start: 20121210
  3. THALOMID [Suspect]
     Dosage: 25 MILLIGRAM
     Route: 048
     Dates: start: 201201
  4. LACTULOSE [Concomitant]
     Indication: PRODUCT USED FOR UNKNOWN INDICATION
     Route: 065
  5. AMILORIDE [Concomitant]
     Indication: PRODUCT USED FOR UNKNOWN INDICATION
     Route: 065
  6. INSULIN [Concomitant]
     Indication: PRODUCT USED FOR UNKNOWN INDICATION
     Route: 065
  7. FRUSEMIDE [Concomitant]
     Indication: PRODUCT USED FOR UNKNOWN INDICATION
     Route: 065

REACTIONS (1)
  - Liver disorder [Recovered/Resolved]
